FAERS Safety Report 7508109-0 (Version None)
Quarter: 2011Q2

REPORT INFORMATION
  Report Type: 
  Country: None (occurrence: None)
  Receive Date: 20110527
  Receipt Date: 20110120
  Transmission Date: 20111010
  Serious: Yes (Other)
  Sender: FDA-Public Use
  Company Number: US-BAYER-201037901NA

PATIENT
  Sex: Female
  Weight: 72.562 kg

DRUGS (2)
  1. YASMIN [Suspect]
     Indication: CONTRACEPTION
  2. YASMIN [Suspect]
     Indication: ACNE
     Dosage: UNK
     Dates: start: 20030101, end: 20060101

REACTIONS (5)
  - CHOLELITHIASIS [None]
  - CHOLECYSTITIS CHRONIC [None]
  - PAIN [None]
  - BILE DUCT STONE [None]
  - GALLBLADDER DISORDER [None]
